FAERS Safety Report 5896764-0 (Version None)
Quarter: 2008Q3

REPORT INFORMATION
  Report Type: 
  Country: None (occurrence: None)
  Receive Date: 20080924
  Receipt Date: 20071112
  Transmission Date: 20090109
  Serious: Yes (Other)
  Sender: FDA-Public Use
  Company Number: US-ASTRAZENECA-2007UW26242

PATIENT
  Sex: Female

DRUGS (6)
  1. SEROQUEL [Suspect]
     Indication: NIGHTMARE
     Route: 048
  2. SEROQUEL [Suspect]
     Indication: SLEEP DISORDER
     Route: 048
  3. BUSPAR [Concomitant]
  4. CYMBALTA [Concomitant]
  5. VALIUM [Concomitant]
  6. MUSCLE RELAXERS [Concomitant]

REACTIONS (4)
  - BIPOLAR DISORDER [None]
  - CRYING [None]
  - FEELINGS OF WORTHLESSNESS [None]
  - SUICIDAL IDEATION [None]
